FAERS Safety Report 7201677-8 (Version None)
Quarter: 2010Q4

REPORT INFORMATION
  Report Type: 
  Country: None (occurrence: None)
  Receive Date: 20101229
  Receipt Date: 20101222
  Transmission Date: 20110411
  Serious: Yes (Other)
  Sender: FDA-Public Use
  Company Number: US-PFIZER INC-2010066406

PATIENT
  Sex: Female
  Weight: 53.51 kg

DRUGS (12)
  1. CHANTIX [Suspect]
     Indication: SMOKING CESSATION THERAPY
     Dosage: 0.5 MG, 1X/DAY
     Route: 048
     Dates: start: 20090101, end: 20090101
  2. CHANTIX [Suspect]
     Dosage: UNK
     Route: 048
     Dates: start: 20090101, end: 20100201
  3. CHANTIX [Suspect]
     Dosage: UNK
     Dates: start: 20101101
  4. CHANTIX [Suspect]
     Dosage: UNK
     Route: 048
     Dates: start: 20101101, end: 20101201
  5. ENALAPRIL [Concomitant]
     Indication: HYPERTENSION
     Dosage: 5 MG, 1X/DAY
  6. ENALAPRIL [Concomitant]
     Dosage: 5 MG, UNK
  7. DIAZEPAM [Concomitant]
     Dosage: 10 MG, 4X/DAY
  8. LORTAB [Concomitant]
     Dosage: 10 MG, 4X/DAY
  9. OXYCONTIN [Concomitant]
     Dosage: 80 MG, 1X/DAY
  10. NEXIUM [Concomitant]
     Indication: DYSPEPSIA
     Dosage: UNK
  11. INDERAL [Concomitant]
     Indication: HYPERTENSION
     Dosage: 160 MG, UNK
  12. RANITIDINE [Concomitant]
     Dosage: 150 MG, UNK

REACTIONS (4)
  - BONE DISORDER [None]
  - RASH GENERALISED [None]
  - SPINAL FUSION SURGERY [None]
  - SWELLING [None]
